FAERS Safety Report 4658516-9 (Version None)
Quarter: 2005Q2

REPORT INFORMATION
  Report Type: 
  Country: None (occurrence: None)
  Receive Date: 20050510
  Receipt Date: 20050510
  Transmission Date: 20051028
  Serious: Yes (Other)
  Sender: FDA-Public Use
  Company Number: None

PATIENT
  Age: 13 Year
  Sex: Female
  Weight: 53.978 kg

DRUGS (1)
  1. CONCERTA [Suspect]
     Indication: ATTENTION DEFICIT/HYPERACTIVITY DISORDER
     Dosage: 27MG   QAM  ORAL
     Route: 048
     Dates: start: 20010807, end: 20050330

REACTIONS (3)
  - DEPRESSION [None]
  - NEGATIVE THOUGHTS [None]
  - SELF-INJURIOUS IDEATION [None]
